FAERS Safety Report 7722961-5 (Version None)
Quarter: 2011Q3

REPORT INFORMATION
  Report Type: 
  Country: None (occurrence: None)
  Receive Date: 20110901
  Receipt Date: 20110822
  Transmission Date: 20111222
  Serious: Yes (Other)
  Sender: FDA-Public Use
  Company Number: AU-JNJFOC-20110706373

PATIENT
  Sex: Female

DRUGS (11)
  1. SIMPONI [Suspect]
     Route: 058
     Dates: start: 20110424
  2. SIMPONI [Suspect]
     Route: 058
     Dates: start: 20110520
  3. ASCORBIC ACID [Concomitant]
  4. SIMPONI [Suspect]
     Route: 058
     Dates: start: 20110619
  5. PLAQUENIL [Concomitant]
  6. COLGOUT [Concomitant]
  7. METHOTREXATE [Concomitant]
  8. FOLIC ACID [Concomitant]
  9. SIMPONI [Suspect]
     Indication: RHEUMATOID ARTHRITIS
     Route: 058
     Dates: start: 20110318
  10. SIMPONI [Suspect]
     Route: 058
     Dates: start: 20110730
  11. PREDNISONE [Concomitant]

REACTIONS (2)
  - POSTOPERATIVE WOUND INFECTION [None]
  - OSTEOPOROTIC FRACTURE [None]
